FAERS Safety Report 22122955 (Version 2)
Quarter: 2023Q2

REPORT INFORMATION
  Report Type: Spontaneous
  Country: US (occurrence: US)
  Receive Date: 20230322
  Receipt Date: 20230517
  Transmission Date: 20230722
  Serious: No
  Sender: FDA-Public Use
  Company Number: US-LUPIN PHARMACEUTICALS INC.-2023-02117

PATIENT

DRUGS (1)
  1. ALBUTEROL SULFATE [Suspect]
     Active Substance: ALBUTEROL SULFATE
     Indication: Asthma
     Dosage: 2 DOSAGE FORM, QID ( 2 PUFFS EVERY 4 HOURS)
     Dates: start: 20230220

REACTIONS (3)
  - Asthma [Unknown]
  - Drug dose omission by device [Unknown]
  - Device delivery system issue [Unknown]
